FAERS Safety Report 5589352-7 (Version None)
Quarter: 2008Q1

REPORT INFORMATION
  Report Type: 
  Country: None (occurrence: None)
  Receive Date: 20080114
  Receipt Date: 20080107
  Transmission Date: 20080703
  Serious: Yes (Hospitalization, Other)
  Sender: FDA-Public Use
  Company Number: US-JNJFOC-20080101623

PATIENT
  Sex: Female
  Weight: 74.84 kg

DRUGS (13)
  1. DURAGESIC-100 [Suspect]
     Indication: PAIN
     Route: 062
  2. MORPHINE SUL INJ [Concomitant]
     Indication: PAIN
     Route: 048
  3. LEVOTHROID [Concomitant]
     Indication: THYROID DISORDER
     Route: 048
  4. REGLAN [Concomitant]
     Indication: NAUSEA
     Route: 048
  5. LUNESTA [Concomitant]
     Indication: SLEEP DISORDER
     Route: 048
  6. NEXIUM [Concomitant]
     Indication: GASTROOESOPHAGEAL REFLUX DISEASE
     Route: 048
  7. ONDANSETRON [Concomitant]
     Indication: NAUSEA
     Route: 048
  8. PHENERGAN HCL [Concomitant]
     Indication: NAUSEA
     Route: 048
  9. LEXAPRO [Concomitant]
     Indication: DEPRESSION
     Route: 048
  10. DEPAKOTE [Concomitant]
     Indication: BIPOLAR DISORDER
     Route: 048
  11. SOMA [Concomitant]
     Indication: MUSCLE RELAXANT THERAPY
     Route: 048
  12. KLONOPIN [Concomitant]
     Indication: ANXIETY
     Route: 048
  13. LYRICA [Concomitant]
     Indication: MYALGIA
     Route: 048

REACTIONS (7)
  - BACK PAIN [None]
  - DRUG ADMINISTERED AT INAPPROPRIATE SITE [None]
  - FLUID RETENTION [None]
  - HIP FRACTURE [None]
  - PAIN IN EXTREMITY [None]
  - RENAL CELL CARCINOMA [None]
  - WRONG TECHNIQUE IN DRUG USAGE PROCESS [None]
